FAERS Safety Report 7677510-7 (Version None)
Quarter: 2011Q3

REPORT INFORMATION
  Report Type: 
  Country: None (occurrence: None)
  Receive Date: 20110811
  Receipt Date: 20110802
  Transmission Date: 20111222
  Serious: Yes (Hospitalization)
  Sender: FDA-Public Use
  Company Number: US-JNJFOC-20110800337

PATIENT
  Sex: Male
  Weight: 49.3 kg

DRUGS (20)
  1. HUMIRA [Concomitant]
     Dates: start: 20090821
  2. BENZOYL PEROXIDE [Concomitant]
  3. CLINDAMYCIN [Concomitant]
  4. FOLIC ACID [Concomitant]
  5. MULTI-VITAMINS [Concomitant]
  6. CHOLECALCIFEROL [Concomitant]
  7. ANTIBIOTICS [Concomitant]
  8. GROWTH HORMONE [Concomitant]
  9. IBUPROFEN [Concomitant]
  10. REMICADE [Suspect]
     Indication: INFLAMMATORY BOWEL DISEASE
     Route: 042
     Dates: start: 20090706, end: 20090723
  11. ADAPALENE [Concomitant]
  12. LEVOTHYROXINE SODIUM [Concomitant]
  13. PROBIOTICS [Concomitant]
  14. ACETAMINOPHEN [Concomitant]
  15. CALCIUM 600 AND VITAMIN D [Concomitant]
  16. LETROZOLE [Concomitant]
  17. METHOTREXATE [Concomitant]
  18. OMEPRAZOLE [Concomitant]
  19. ASCORBIC ACID [Concomitant]
  20. DAPSONE [Concomitant]

REACTIONS (1)
  - MUSCULAR WEAKNESS [None]
